FAERS Safety Report 5969057-0 (Version None)
Quarter: 2008Q4

REPORT INFORMATION
  Report Type: 
  Country: None (occurrence: None)
  Receive Date: 20081126
  Receipt Date: 20081120
  Transmission Date: 20090506
  Serious: Yes (Other)
  Sender: FDA-Public Use
  Company Number: CA-ABBOTT-08P-028-0489109-00

PATIENT
  Sex: Female

DRUGS (1)
  1. HUMIRA [Suspect]
     Indication: CROHN'S DISEASE
     Dosage: INITIAL DOSE
     Route: 058
     Dates: start: 20071010, end: 20071010

REACTIONS (1)
  - PANCREATITIS [None]
